FAERS Safety Report 7217015-0 (Version None)
Quarter: 2011Q1

REPORT INFORMATION
  Report Type: 
  Country: None (occurrence: None)
  Receive Date: 20110110
  Receipt Date: 20101228
  Transmission Date: 20110831
  Serious: Yes (Hospitalization)
  Sender: FDA-Public Use
  Company Number: JP-PFIZER INC-2010162931

PATIENT
  Age: 54 Year
  Sex: Female

DRUGS (9)
  1. GASMOTIN [Concomitant]
     Dosage: UNK
     Route: 048
     Dates: start: 20100929, end: 20101104
  2. ACINON [Concomitant]
     Dosage: UNK
     Route: 048
     Dates: start: 20100929, end: 20101104
  3. CELECOX [Suspect]
     Dosage: UNK
     Route: 048
     Dates: start: 20100201
  4. MYONAL [Concomitant]
     Dosage: UNK
     Route: 048
     Dates: start: 20100929, end: 20101104
  5. CELECOX [Suspect]
     Dosage: 200 MG, UNKNOWN/D
     Route: 048
     Dates: start: 20100929, end: 20101104
  6. INFLUENZA VIRUS VACCINE POLYVALENT [Concomitant]
     Dosage: UNK
     Dates: start: 20101104
  7. ISODINE [Concomitant]
  8. PRAVASTATIN SODIUM [Concomitant]
     Dosage: UNK
     Route: 048
     Dates: start: 20100929, end: 20101104
  9. SELBEX [Concomitant]
     Dosage: UNK
     Route: 048
     Dates: start: 20100929, end: 20101104

REACTIONS (1)
  - RESPIRATORY TRACT OEDEMA [None]
